FAERS Safety Report 14982742 (Version 1)
Quarter: 2018Q2

REPORT INFORMATION
  Report Type: Spontaneous
  Country: FR (occurrence: FR)
  Receive Date: 20180607
  Receipt Date: 20180607
  Transmission Date: 20180711
  Serious: Yes (Other)
  Sender: FDA-Public Use
  Company Number: FR-TEVA-2018-FR-901131

PATIENT
  Age: 60 Year
  Sex: Male

DRUGS (1)
  1. SILDENAFIL TEVA 100 MG [Suspect]
     Active Substance: SILDENAFIL CITRATE
     Indication: ERECTILE DYSFUNCTION
     Dosage: ABOUT THREE TABLETS PER WEEK ON AVERAGE STARTED FOR TEN YEARS OR MORE EARLIER

REACTIONS (1)
  - Haematochezia [Unknown]

NARRATIVE: CASE EVENT DATE: 20180527
